FAERS Safety Report 9467507 (Version 1)
Quarter: 2013Q3

REPORT INFORMATION
  Report Type: Spontaneous
  Country: US (occurrence: None)
  Receive Date: 20130819
  Receipt Date: 20130819
  Transmission Date: 20140515
  Serious: Yes (Death, Hospitalization)
  Sender: FDA-Public Use
  Company Number: None

PATIENT
  Age: 17 Year
  Sex: Male
  Weight: 74.3 kg

DRUGS (2)
  1. CYTARABINE [Suspect]
     Dates: end: 20121016
  2. MITOXANTRONE HYDROCHLORIDE [Suspect]
     Dates: end: 20121018

REACTIONS (1)
  - Cerebral haemorrhage [None]
